FAERS Safety Report 13435857 (Version 1)
Quarter: 2017Q2

REPORT INFORMATION
  Report Type: Spontaneous
  Country: US (occurrence: US)
  Receive Date: 20170412
  Receipt Date: 20170412
  Transmission Date: 20170830
  Serious: Yes (Disabling)
  Sender: FDA-Public Use
  Company Number: None

PATIENT
  Age: 65 Year
  Sex: Female
  Weight: 60.3 kg

DRUGS (8)
  1. COQ10 [Concomitant]
     Active Substance: UBIDECARENONE
  2. LYRICA [Suspect]
     Active Substance: PREGABALIN
     Indication: NEURALGIA
     Dosage: ?          QUANTITY:1 CAPSULE(S);?
     Route: 048
     Dates: start: 20170321, end: 20170411
  3. DECADRON [Concomitant]
     Active Substance: DEXAMETHASONE
  4. VALIUM [Concomitant]
     Active Substance: DIAZEPAM
  5. TRAMADOL. [Concomitant]
     Active Substance: TRAMADOL
  6. AMBEIN [Concomitant]
  7. VITAMIN B12 [Concomitant]
     Active Substance: CYANOCOBALAMIN
  8. D [Concomitant]

REACTIONS (8)
  - Dysphonia [None]
  - Hypoaesthesia [None]
  - Peripheral swelling [None]
  - Cough [None]
  - Swelling face [None]
  - Dry mouth [None]
  - Thirst [None]
  - Irritability [None]

NARRATIVE: CASE EVENT DATE: 20170411
